FAERS Safety Report 4898381-8 (Version None)
Quarter: 2006Q1

REPORT INFORMATION
  Report Type: 
  Country: None (occurrence: None)
  Receive Date: 20060201
  Receipt Date: 20060201
  Transmission Date: 20060701
  Serious: Yes (Disabling)
  Sender: FDA-Public Use
  Company Number: None

PATIENT
  Sex: Male
  Weight: 68.0396 kg

DRUGS (1)
  1. ZICAM LIQUID NASAL GEL [Suspect]
     Indication: UPPER RESPIRATORY TRACT INFECTION
     Dosage: METERED ONCE/NOSTRIL NASAL
     Route: 045
     Dates: start: 20060119

REACTIONS (2)
  - HYPOSMIA [None]
  - SENSORY LOSS [None]
